FAERS Safety Report 4647772-9 (Version None)
Quarter: 2005Q2

REPORT INFORMATION
  Report Type: 
  Country: None (occurrence: None)
  Receive Date: 20050426
  Receipt Date: 20050330
  Transmission Date: 20051028
  Serious: Yes (Hospitalization)
  Sender: FDA-Public Use
  Company Number: 2005PK00519

PATIENT
  Age: 38 Year
  Sex: Male
  Weight: 76 kg

DRUGS (6)
  1. GEFITINIB [Suspect]
     Indication: NON-SMALL CELL LUNG CANCER
     Dosage: 250 MG DAILY; PO
     Route: 048
     Dates: start: 20041213
  2. RADIATION THERAPY [Suspect]
     Indication: NON-SMALL CELL LUNG CANCER
  3. IBUHEXAL [Concomitant]
  4. LISIGAMMA [Concomitant]
  5. RIFUN [Concomitant]
  6. TEPILTA [Concomitant]

REACTIONS (4)
  - DYSPNOEA [None]
  - GENERAL PHYSICAL HEALTH DETERIORATION [None]
  - PNEUMONIA [None]
  - TUMOUR NECROSIS [None]
